FAERS Safety Report 13969718 (Version 2)
Quarter: 2018Q1

REPORT INFORMATION
  Report Type: Spontaneous
  Country: ES (occurrence: ES)
  Receive Date: 20170914
  Receipt Date: 20180215
  Transmission Date: 20180508
  Serious: Yes (Disabling, Other)
  Sender: FDA-Public Use
  Company Number: ES-PFIZER INC-2017391615

PATIENT
  Age: 37 Year
  Sex: Male

DRUGS (1)
  1. VANDRAL RETARD [Suspect]
     Active Substance: VENLAFAXINE HYDROCHLORIDE
     Indication: GENERALISED ANXIETY DISORDER
     Dosage: UNK
     Route: 065
     Dates: start: 201101, end: 201606

REACTIONS (7)
  - Blindness unilateral [Unknown]
  - Vision blurred [Unknown]
  - Eye haemorrhage [Not Recovered/Not Resolved]
  - Vitreous floaters [Unknown]
  - Vitritis [Unknown]
  - Autoimmune uveitis [Unknown]
  - Eye inflammation [Unknown]

NARRATIVE: CASE EVENT DATE: 2016
